FAERS Safety Report 16752258 (Version 6)
Quarter: 2020Q2

REPORT INFORMATION
  Report Type: Spontaneous
  Country: BR (occurrence: BR)
  Receive Date: 20190828
  Receipt Date: 20200626
  Transmission Date: 20200713
  Serious: Yes (Other)
  Sender: FDA-Public Use
  Company Number: BR-GLAXOSMITHKLINE-BR2019GSK089327

PATIENT
  Age: 72 Year
  Sex: Female

DRUGS (1)
  1. NUCALA [Suspect]
     Active Substance: MEPOLIZUMAB
     Indication: ASTHMA
     Dosage: 100 MG, UNK
     Route: 042
     Dates: start: 20190124

REACTIONS (13)
  - Wheezing [Unknown]
  - Syncope [Unknown]
  - Complication associated with device [Unknown]
  - Inappropriate schedule of product administration [Unknown]
  - Dyspnoea [Unknown]
  - Asthmatic crisis [Unknown]
  - Fatigue [Unknown]
  - Disease recurrence [Unknown]
  - Asthenia [Unknown]
  - Cardiac pacemaker insertion [Unknown]
  - Cough [Unknown]
  - Bronchitis chronic [Unknown]
  - Product dose omission [Unknown]

NARRATIVE: CASE EVENT DATE: 20190819
